FAERS Safety Report 7585301-0 (Version None)
Quarter: 2011Q2

REPORT INFORMATION
  Report Type: 
  Country: None (occurrence: None)
  Receive Date: 20110629
  Receipt Date: 20110629
  Transmission Date: 20111010
  Serious: Yes (Death)
  Sender: FDA-Public Use
  Company Number: None

PATIENT
  Sex: Male
  Weight: 82.1 kg

DRUGS (13)
  1. ERBITUX [Suspect]
     Indication: TONGUE NEOPLASM MALIGNANT STAGE UNSPECIFIED
     Dosage: 784MG --26MG INFUSED- 1X IV DRIP
     Route: 041
     Dates: start: 20110624, end: 20110624
  2. MORPHINE [Concomitant]
  3. MAGIC MOUTHWASH [Concomitant]
  4. ONDANSETRON [Concomitant]
  5. ERBITUX [Concomitant]
  6. PANTOPRAZOLE [Concomitant]
  7. DALTEPARIN SODIUM [Concomitant]
  8. DEXTROSE [Concomitant]
  9. PROCHLORPERAZINE TAB [Concomitant]
  10. METOCLOPRAMIDE [Concomitant]
  11. MIRALAX [Concomitant]
  12. PROMETHAZINE [Concomitant]
  13. DIPHENHYDRAMINE HCL [Concomitant]

REACTIONS (5)
  - TREMOR [None]
  - INFUSION RELATED REACTION [None]
  - SKIN DISCOLOURATION [None]
  - CARDIO-RESPIRATORY ARREST [None]
  - DYSPNOEA [None]
